FAERS Safety Report 22288920 (Version 9)
Quarter: 2025Q3

REPORT INFORMATION
  Report Type: Spontaneous
  Country: US (occurrence: US)
  Receive Date: 20230505
  Receipt Date: 20250915
  Transmission Date: 20251020
  Serious: Yes (Other)
  Sender: PFIZER
  Company Number: US-PFIZER INC-2021130394

PATIENT
  Age: 73 Year
  Sex: Male
  Weight: 90.26 kg

DRUGS (16)
  1. VYNDAMAX [Suspect]
     Active Substance: TAFAMIDIS
     Indication: Cardiac amyloidosis
     Dosage: 61 MG, 1X/DAY
     Route: 048
  2. VYNDAMAX [Suspect]
     Active Substance: TAFAMIDIS
     Indication: Chronic left ventricular failure
     Dosage: 61 MG, DAILY
     Route: 048
  3. VYNDAMAX [Suspect]
     Active Substance: TAFAMIDIS
     Dosage: 61 MG, 1X/DAY
     Route: 048
     Dates: start: 20250612, end: 202507
  4. VYNDAMAX [Suspect]
     Active Substance: TAFAMIDIS
     Dosage: ONE 61 MG TAFAMIDIS CAPSULE ORALLY ONCE DAILY (IN THE MORNING)
     Route: 048
  5. ALLOPURINOL [Concomitant]
     Active Substance: ALLOPURINOL
     Indication: Gout
     Dosage: HALF A TABLET A DAY THREE TIMES WEEK
     Route: 048
  6. ATORVASTATIN [Concomitant]
     Active Substance: ATORVASTATIN
     Indication: Blood cholesterol abnormal
     Dosage: TAKE 1/2 TABLET DAILY (40 MG)
  7. ATORVASTATIN [Concomitant]
     Active Substance: ATORVASTATIN
     Dosage: 80 MG, DAILY
     Route: 048
  8. CALCITRIOL [Concomitant]
     Active Substance: CALCITRIOL
     Indication: Blood calcium abnormal
     Route: 048
  9. LOSARTAN [Concomitant]
     Active Substance: LOSARTAN
     Indication: Blood pressure abnormal
     Dosage: 25 MG, DAILY
  10. METOPROLOL [Concomitant]
     Active Substance: METOPROLOL
     Dosage: 50 MG, 1X/DAY
     Route: 048
  11. METHYLPHENIDATE [Concomitant]
     Active Substance: METHYLPHENIDATE
     Indication: Attention deficit hyperactivity disorder
     Dosage: ONE IN THE MORNING AND ONE IN EVENING AS NEEDED
     Route: 048
  12. ELIQUIS [Concomitant]
     Active Substance: APIXABAN
     Indication: Anticoagulant therapy
     Dosage: 5 MG, 2X/DAY
     Route: 048
  13. LIPITOR [Concomitant]
     Active Substance: ATORVASTATIN CALCIUM
     Indication: Blood cholesterol
     Dosage: HALF TAB DAILY FOR A WEEK THEN 1 DAILY
  14. LIPITOR [Concomitant]
     Active Substance: ATORVASTATIN CALCIUM
     Dosage: HALF TAB DAILY FOR A WEEK THEN 1 DAILY
  15. ZOLOFT [Concomitant]
     Active Substance: SERTRALINE HYDROCHLORIDE
     Dosage: TAKE ONE HALF TAB DAILY FOR A WEEK THEN 1 DAILY
  16. REVATIO [Concomitant]
     Active Substance: SILDENAFIL CITRATE

REACTIONS (4)
  - Intervertebral discitis [Not Recovered/Not Resolved]
  - Dyspnoea [Not Recovered/Not Resolved]
  - Hypertension [Unknown]
  - Abdominal distension [Unknown]

NARRATIVE: CASE EVENT DATE: 20230101
